FAERS Safety Report 18463292 (Version 2)
Quarter: 2020Q4

REPORT INFORMATION
  Report Type: Spontaneous
  Country: US (occurrence: US)
  Receive Date: 20201104
  Receipt Date: 20201227
  Transmission Date: 20210114
  Serious: Yes (Other)
  Sender: FDA-Public Use
  Company Number: US-AMGEN-USASP2020174486

PATIENT
  Sex: Female

DRUGS (1)
  1. PROLIA [Suspect]
     Active Substance: DENOSUMAB
     Indication: OSTEOPOROSIS
     Dosage: UNK
     Route: 065
     Dates: start: 2018

REACTIONS (6)
  - Spinal fracture [Unknown]
  - Hand fracture [Unknown]
  - Therapeutic product effect incomplete [Unknown]
  - Lower limb fracture [Unknown]
  - Rib fracture [Unknown]
  - Body height decreased [Unknown]

NARRATIVE: CASE EVENT DATE: 2019
